FAERS Safety Report 24831118 (Version 3)
Quarter: 2025Q1

REPORT INFORMATION
  Report Type: Spontaneous
  Country: DK (occurrence: DK)
  Receive Date: 20250110
  Receipt Date: 20250126
  Transmission Date: 20250409
  Serious: Yes (Death, Hospitalization, Other)
  Sender: MERCK
  Company Number: DK-009507513-2501DNK002020

PATIENT
  Age: 67 Year
  Sex: Male

DRUGS (5)
  1. PEMBROLIZUMAB [Suspect]
     Active Substance: PEMBROLIZUMAB
     Indication: Lung cancer metastatic
  2. CARBOPLATIN [Concomitant]
     Active Substance: CARBOPLATIN
     Indication: Lung cancer metastatic
  3. CARBOPLATIN [Concomitant]
     Active Substance: CARBOPLATIN
  4. PEMETREXED [Concomitant]
     Active Substance: PEMETREXED
     Indication: Lung cancer metastatic
  5. PEMETREXED [Concomitant]
     Active Substance: PEMETREXED

REACTIONS (3)
  - Acute hepatic failure [Fatal]
  - Drug-induced liver injury [Fatal]
  - Incorrect dose administered [Unknown]
